FAERS Safety Report 9494391 (Version 1)
Quarter: 2013Q3

REPORT INFORMATION
  Report Type: Spontaneous
  Country: US (occurrence: None)
  Receive Date: 20130828
  Receipt Date: 20130828
  Transmission Date: 20140515
  Serious: Yes (Other)
  Sender: FDA-Public Use
  Company Number: JPI-P-034774

PATIENT
  Sex: Female

DRUGS (2)
  1. XYREM (500 MILLIGRAM/MILLILITERS SOLUTION) (SODIUM OXYBATE) [Suspect]
     Indication: PRODUCT USED FOR UNKNOWN INDICATION
     Route: 048
  2. AMPHETAMINE AND DEXTROAMPHETAMINE [Concomitant]

REACTIONS (3)
  - Overdose [None]
  - Drug abuse [None]
  - Victim of crime [None]
